FAERS Safety Report 25368109 (Version 1)
Quarter: 2025Q2

REPORT INFORMATION
  Report Type: Spontaneous
  Country: ES (occurrence: ES)
  Receive Date: 20250528
  Receipt Date: 20250528
  Transmission Date: 20250717
  Serious: Yes (Hospitalization, Other)
  Sender: NOVARTIS
  Company Number: ES-002147023-NVSC2025ES084388

PATIENT
  Age: 19 Year
  Sex: Female

DRUGS (3)
  1. CARBAMAZEPINE [Suspect]
     Active Substance: CARBAMAZEPINE
     Indication: Adjustment disorder
     Dosage: 200 MG, QD
     Route: 065
  2. AZITHROMYCIN [Concomitant]
     Active Substance: AZITHROMYCIN
     Indication: Adjustment disorder
     Route: 065
  3. PENICILLIN [Concomitant]
     Active Substance: PENICILLIN
     Indication: Adjustment disorder
     Route: 065

REACTIONS (7)
  - Liver injury [Recovered/Resolved]
  - Jaundice [Recovered/Resolved]
  - Drug reaction with eosinophilia and systemic symptoms [Recovered/Resolved]
  - Rash [Recovered/Resolved]
  - Eosinophilia [Recovered/Resolved]
  - Pruritus [Recovered/Resolved]
  - Product use in unapproved indication [Unknown]
